FAERS Safety Report 8258326-X (Version None)
Quarter: 2012Q2

REPORT INFORMATION
  Report Type: 
  Country: None (occurrence: None)
  Receive Date: 20120403
  Receipt Date: 20120403
  Transmission Date: 20120825
  Serious: Yes (Hospitalization)
  Sender: FDA-Public Use
  Company Number: None

PATIENT
  Age: 57 Year
  Sex: Male

DRUGS (2)
  1. PEGASYS [Suspect]
     Indication: HEPATITIS C
     Dosage: 180MCG QWEEK SQ
     Route: 058
     Dates: start: 20120105, end: 20120320
  2. RIBAVIRIN + TELAPREVIR [Suspect]
     Dosage: RIBAVIRIN 400MG BID Q8H PO TELEPREVIR 375 MG
     Route: 048

REACTIONS (2)
  - BLISTER [None]
  - RASH [None]
